FAERS Safety Report 7179427-3 (Version None)
Quarter: 2010Q4

REPORT INFORMATION
  Report Type: 
  Country: None (occurrence: None)
  Receive Date: 20101208
  Receipt Date: 20101206
  Transmission Date: 20110411
  Serious: Yes (Other)
  Sender: FDA-Public Use
  Company Number: JHP201000345

PATIENT
  Age: 23 Year
  Sex: Male

DRUGS (1)
  1. KETALAR [Suspect]
     Indication: DRUG ABUSE
     Dosage: INHALATION
     Route: 055

REACTIONS (4)
  - CYSTITIS INTERSTITIAL [None]
  - DRUG ABUSER [None]
  - RENAL FUNCTION TEST ABNORMAL [None]
  - URGE INCONTINENCE [None]
